FAERS Safety Report 9991694 (Version 1)
Quarter: 2014Q1

REPORT INFORMATION
  Report Type: Spontaneous
  Country: FR (occurrence: FR)
  Receive Date: 20140310
  Receipt Date: 20140310
  Transmission Date: 20141002
  Serious: Yes (Death)
  Sender: FDA-Public Use
  Company Number: FR-CELGENEUS-056-50794-14024673

PATIENT
  Sex: Female
  Weight: 68 kg

DRUGS (1)
  1. VIDAZA [Suspect]
     Indication: REFRACTORY ANAEMIA WITH AN EXCESS OF BLASTS
     Route: 058
     Dates: start: 20111003, end: 201305

REACTIONS (4)
  - Sepsis [Fatal]
  - Acute myeloid leukaemia [Fatal]
  - Infection [Unknown]
  - Constipation [Unknown]
